FAERS Safety Report 7335171-0 (Version None)
Quarter: 2011Q1

REPORT INFORMATION
  Report Type: 
  Country: None (occurrence: None)
  Receive Date: 20110302
  Receipt Date: 20110302
  Transmission Date: 20110831
  Serious: No
  Sender: FDA-Public Use
  Company Number: None

PATIENT
  Sex: Female
  Weight: 70.3075 kg

DRUGS (1)
  1. AVAPRO [Suspect]
     Indication: HYPERTENSION
     Dosage: 150 MG 1 PILL A DAY ORAL
     Route: 048
     Dates: start: 20090701, end: 20101201

REACTIONS (3)
  - YELLOW NAIL SYNDROME [None]
  - ILL-DEFINED DISORDER [None]
  - HAIR COLOUR CHANGES [None]
